FAERS Safety Report 15298649 (Version 1)
Quarter: 2018Q3

REPORT INFORMATION
  Report Type: Spontaneous
  Country: JP (occurrence: JP)
  Receive Date: 20180820
  Receipt Date: 20180820
  Transmission Date: 20181010
  Serious: Yes (Death)
  Sender: FDA-Public Use
  Company Number: JP-NAPPMUNDI-GBR-2018-0053413

PATIENT
  Sex: Female

DRUGS (2)
  1. OXIFAST [Suspect]
     Active Substance: OXYCODONE
     Indication: CANCER PAIN
     Route: 041
  2. SYMPROIC [Concomitant]
     Active Substance: NALDEMEDINE
     Indication: CONSTIPATION
     Route: 048

REACTIONS (1)
  - Malignant neoplasm progression [Fatal]
